FAERS Safety Report 10882109 (Version 3)
Quarter: 2015Q1

REPORT INFORMATION
  Report Type: Spontaneous
  Country: IT (occurrence: IT)
  Receive Date: 20150303
  Receipt Date: 20150325
  Transmission Date: 20150721
  Serious: Yes (Death, Hospitalization)
  Sender: FDA-Public Use
  Company Number: IT-SA-2015SA025255

PATIENT
  Age: 58 Year
  Sex: Female

DRUGS (1)
  1. TAXOTERE [Suspect]
     Active Substance: DOCETAXEL
     Indication: BREAST CANCER
     Route: 042
     Dates: start: 20150216, end: 20150216

REACTIONS (8)
  - Cardiopulmonary failure [Unknown]
  - Intestinal ischaemia [Fatal]
  - Cardiac arrest [Fatal]
  - Dyspnoea [Unknown]
  - Septic shock [Unknown]
  - Vomiting [Fatal]
  - Abdominal pain [Fatal]
  - Pyrexia [Unknown]

NARRATIVE: CASE EVENT DATE: 20150221
